FAERS Safety Report 25355541 (Version 1)
Quarter: 2025Q2

REPORT INFORMATION
  Report Type: Spontaneous
  Country: US (occurrence: US)
  Receive Date: 20250525
  Receipt Date: 20250525
  Transmission Date: 20250717
  Serious: No
  Sender: ROCHE
  Company Number: US-ROCHE-10000291459

PATIENT
  Age: 58 Year
  Sex: Female

DRUGS (7)
  1. ALECTINIB [Suspect]
     Active Substance: ALECTINIB
     Indication: Non-small cell lung cancer metastatic
     Route: 065
     Dates: start: 20231117
  2. BRIGATINIB [Concomitant]
     Active Substance: BRIGATINIB
     Dates: start: 20231108
  3. BRIGATINIB [Concomitant]
     Active Substance: BRIGATINIB
     Dates: start: 20231109
  4. DEXAMETHASONE [Concomitant]
     Active Substance: DEXAMETHASONE
  5. CEFEPIME [Concomitant]
     Active Substance: CEFEPIME HYDROCHLORIDE
  6. METHYLPREDNISOLONE [Concomitant]
     Active Substance: METHYLPREDNISOLONE
     Route: 042
  7. INFLIXIMAB [Concomitant]
     Active Substance: INFLIXIMAB

REACTIONS (1)
  - Constipation [Unknown]
